FAERS Safety Report 6892742-3 (Version None)
Quarter: 2010Q3

REPORT INFORMATION
  Report Type: 
  Country: None (occurrence: None)
  Receive Date: 20100731
  Receipt Date: 20080825
  Transmission Date: 20110219
  Serious: Yes (Hospitalization, Other)
  Sender: FDA-Public Use
  Company Number: US-PFIZER INC-2008070951

PATIENT
  Sex: Female
  Weight: 104.5 kg

DRUGS (2)
  1. NEURONTIN [Suspect]
     Indication: MIGRAINE
     Route: 048
     Dates: end: 20080804
  2. EFFEXOR XR [Concomitant]

REACTIONS (1)
  - MIGRAINE [None]
